FAERS Safety Report 22079532 (Version 1)
Quarter: 2023Q1

REPORT INFORMATION
  Report Type: Spontaneous
  Country: US (occurrence: US)
  Receive Date: 20230309
  Receipt Date: 20230309
  Transmission Date: 20230418
  Serious: Yes (Other)
  Sender: FDA-Public Use
  Company Number: US-PFIZER INC-202300100213

PATIENT
  Sex: Female

DRUGS (1)
  1. DEPO-PROVERA [Suspect]
     Active Substance: MEDROXYPROGESTERONE ACETATE
     Indication: Menopause
     Dosage: UNK

REACTIONS (7)
  - Haemorrhage [Unknown]
  - Abdominal pain upper [Unknown]
  - Discomfort [Unknown]
  - Fatigue [Unknown]
  - Intermenstrual bleeding [Unknown]
  - Asthenia [Unknown]
  - Off label use [Unknown]
